FAERS Safety Report 12603860 (Version 2)
Quarter: 2016Q3

REPORT INFORMATION
  Report Type: Spontaneous
  Country: IT (occurrence: IT)
  Receive Date: 20160728
  Receipt Date: 20160809
  Transmission Date: 20161109
  Serious: Yes (Death, Hospitalization, Other)
  Sender: FDA-Public Use
  Company Number: IT-TEVA-678068ACC

PATIENT
  Age: 77 Year
  Sex: Female

DRUGS (5)
  1. PROTAPHANE NOVOLET - 100 IU/ML SOSPENSIONE INIETTABILE - NOVO NORDISK [Concomitant]
     Indication: TYPE 2 DIABETES MELLITUS
     Route: 058
     Dates: start: 20140513
  2. DIURESIX - COMPRESSE 10 MG - MENARINI INTERNATIONAL OPERATIONS LUXEMBO [Concomitant]
     Indication: PRODUCT USED FOR UNKNOWN INDICATION
     Route: 048
  3. METFORMIN [Suspect]
     Active Substance: METFORMIN HYDROCHLORIDE
     Indication: TYPE 2 DIABETES MELLITUS
     Dosage: 1500 MILLIGRAM DAILY;
     Route: 048
  4. INDAPAMIDE SANDOZ - 2,5 MG COMPRESSE RIVESTITE-SANDOZ S.P.A. [Concomitant]
     Indication: HYPERTENSION
     Dosage: 2.5 MG
     Route: 048
  5. ENALAPRIL [Concomitant]
     Active Substance: ENALAPRIL
     Indication: HYPERTENSION
     Dosage: 20 MG
     Route: 048
     Dates: start: 20140513, end: 20160704

REACTIONS (5)
  - Ventricular tachycardia [Unknown]
  - Lactic acidosis [Fatal]
  - Acute kidney injury [Unknown]
  - Gangrene [Unknown]
  - Cardio-respiratory arrest [Unknown]

NARRATIVE: CASE EVENT DATE: 20160704
